FAERS Safety Report 16040072 (Version 1)
Quarter: 2019Q1

REPORT INFORMATION
  Report Type: Spontaneous
  Country: FR (occurrence: FR)
  Receive Date: 20190306
  Receipt Date: 20190306
  Transmission Date: 20190418
  Serious: Yes (Hospitalization)
  Sender: FDA-Public Use
  Company Number: FR-CELGENEUS-FRA-20190209824

PATIENT
  Sex: Male

DRUGS (1)
  1. AG-221 [Suspect]
     Active Substance: ENASIDENIB
     Indication: ACUTE MYELOID LEUKAEMIA
     Route: 048
     Dates: start: 20180219

REACTIONS (13)
  - Anaemia [Recovering/Resolving]
  - Gingival bleeding [Recovering/Resolving]
  - Gastric ulcer [Recovering/Resolving]
  - Diarrhoea [Recovering/Resolving]
  - Starvation [Recovering/Resolving]
  - Thrombocytopenia [Recovering/Resolving]
  - Renal failure [Recovering/Resolving]
  - Pyrexia [Recovering/Resolving]
  - General physical health deterioration [Recovering/Resolving]
  - Leukocytosis [Recovering/Resolving]
  - Melaena [Recovering/Resolving]
  - Differentiation syndrome [Recovering/Resolving]
  - Cough [Recovering/Resolving]

NARRATIVE: CASE EVENT DATE: 20180429
